FAERS Safety Report 23803785 (Version 3)
Quarter: 2024Q2

REPORT INFORMATION
  Report Type: Spontaneous
  Country: US (occurrence: US)
  Receive Date: 20240501
  Receipt Date: 20240611
  Transmission Date: 20240716
  Serious: No
  Sender: FDA-Public Use
  Company Number: US-Calliditas-2024CAL00655

PATIENT
  Age: 38 Year
  Sex: Male
  Weight: 89 kg

DRUGS (4)
  1. TARPEYO [Suspect]
     Active Substance: BUDESONIDE
     Indication: IgA nephropathy
     Dosage: 16MG (4MG CAPSULES) ONCE DAILY
     Route: 048
     Dates: start: 20240322
  2. FISH OIL [Concomitant]
     Active Substance: FISH OIL
  3. VITAMIN D NOS [Concomitant]
     Active Substance: CHOLECALCIFEROL\ERGOCALCIFEROL
  4. FILSPARI [Concomitant]
     Active Substance: SPARSENTAN

REACTIONS (4)
  - Prescribed underdose [Not Recovered/Not Resolved]
  - Nervousness [Recovered/Resolved]
  - Blood pressure decreased [Recovered/Resolved]
  - Energy increased [Not Recovered/Not Resolved]

NARRATIVE: CASE EVENT DATE: 20240405
